FAERS Safety Report 15986436 (Version 1)
Quarter: 2019Q1

REPORT INFORMATION
  Report Type: Spontaneous
  Country: US (occurrence: US)
  Receive Date: 20190220
  Receipt Date: 20190220
  Transmission Date: 20190418
  Serious: Yes (Other)
  Sender: FDA-Public Use
  Company Number: US-GLAXOSMITHKLINE-US2019026795

PATIENT
  Age: 65 Year
  Sex: Female

DRUGS (1)
  1. FLOVENT DISKUS [Suspect]
     Active Substance: FLUTICASONE PROPIONATE
     Indication: ASTHMA
     Dosage: UNK
     Route: 055
     Dates: start: 20190212

REACTIONS (4)
  - Dysphonia [Not Recovered/Not Resolved]
  - Wrong technique in device usage process [Unknown]
  - Pneumonia [Unknown]
  - Cough [Not Recovered/Not Resolved]

NARRATIVE: CASE EVENT DATE: 20190212
